FAERS Safety Report 5598822-7 (Version None)
Quarter: 2008Q1

REPORT INFORMATION
  Report Type: 
  Country: None (occurrence: None)
  Receive Date: 20080122
  Receipt Date: 20080114
  Transmission Date: 20080703
  Serious: Yes (Death, Hospitalization)
  Sender: FDA-Public Use
  Company Number: US-ELI_LILLY_AND_COMPANY-US200711004259

PATIENT
  Sex: Female

DRUGS (2)
  1. FORTEO [Suspect]
     Indication: OSTEOPOROSIS
     Dates: start: 20070101, end: 20071001
  2. CALCIUM GLUCONATE [Concomitant]

REACTIONS (6)
  - ASTHENIA [None]
  - COLON CANCER [None]
  - DEHYDRATION [None]
  - HEPATIC NEOPLASM MALIGNANT [None]
  - MASS [None]
  - NAUSEA [None]
